FAERS Safety Report 18638580 (Version 1)
Quarter: 2020Q4

REPORT INFORMATION
  Report Type: Spontaneous
  Country: US (occurrence: US)
  Receive Date: 20201218
  Receipt Date: 20201218
  Transmission Date: 20210114
  Serious: Yes (Hospitalization)
  Sender: FDA-Public Use
  Company Number: US-ELI_LILLY_AND_COMPANY-US202012005929

PATIENT
  Sex: Male
  Weight: 86.2 kg

DRUGS (1)
  1. BAMLANIVIMAB 700MG [Suspect]
     Active Substance: BAMLANIVIMAB
     Indication: COVID-19
     Dosage: 700 MG, SINGLE
     Route: 042
     Dates: start: 20201124, end: 20201124

REACTIONS (3)
  - COVID-19 pneumonia [Unknown]
  - Oxygen saturation decreased [Recovering/Resolving]
  - Dyspnoea [Unknown]
